FAERS Safety Report 6066858-8 (Version None)
Quarter: 2009Q1

REPORT INFORMATION
  Report Type: 
  Country: None (occurrence: None)
  Receive Date: 20090205
  Receipt Date: 20080603
  Transmission Date: 20090719
  Serious: No
  Sender: FDA-Public Use
  Company Number: US-ABBOTT-08P-163-0455193-00

PATIENT
  Sex: Female

DRUGS (5)
  1. VICODIN [Suspect]
     Indication: GALLBLADDER OPERATION
     Route: 048
     Dates: start: 20080505
  2. VICODIN [Suspect]
     Indication: BRAIN OPERATION
  3. PHENYTOIN [Concomitant]
     Indication: CONVULSION
     Route: 048
     Dates: start: 20080602
  4. DEXAMETHASONE [Concomitant]
     Indication: CONVULSION
     Route: 048
     Dates: start: 20080602, end: 20080610
  5. ALLERGY SHOTS [Concomitant]
     Indication: DRUG USE FOR UNKNOWN INDICATION
     Route: 050

REACTIONS (3)
  - INSOMNIA [None]
  - RESTLESS LEGS SYNDROME [None]
  - URTICARIA [None]
